FAERS Safety Report 17661180 (Version 1)
Quarter: 2020Q2

REPORT INFORMATION
  Report Type: Spontaneous
  Country: US (occurrence: US)
  Receive Date: 20200412
  Receipt Date: 20200412
  Transmission Date: 20200713
  Serious: Yes (Life-Threatening, Other)
  Sender: FDA-Public Use
  Company Number: None

PATIENT
  Age: 38 Year
  Sex: Female
  Weight: 69.75 kg

DRUGS (6)
  1. QUETIAPINE FUMARATE 200 MG [Suspect]
     Active Substance: QUETIAPINE FUMARATE
     Indication: BIPOLAR DISORDER
     Route: 048
  2. QUETIAPINE. [Concomitant]
     Active Substance: QUETIAPINE
  3. CLONAZEPAM. [Concomitant]
     Active Substance: CLONAZEPAM
  4. PANTOPRAZOLE EC [Concomitant]
  5. DICYCLOMINE [Concomitant]
     Active Substance: DICYCLOMINE HYDROCHLORIDE
  6. IBUPROFEN. [Concomitant]
     Active Substance: IBUPROFEN

REACTIONS (11)
  - Loss of consciousness [None]
  - Suspected product tampering [None]
  - Palpitations [None]
  - Gait disturbance [None]
  - Partner stress [None]
  - Dizziness [None]
  - Asthenia [None]
  - Heart rate increased [None]
  - Heart rate irregular [None]
  - Visual impairment [None]
  - Victim of crime [None]

NARRATIVE: CASE EVENT DATE: 20200411
